FAERS Safety Report 9518685 (Version 1)
Quarter: 2013Q3

REPORT INFORMATION
  Report Type: Spontaneous
  Country: US (occurrence: None)
  Receive Date: 20130912
  Receipt Date: 20130912
  Transmission Date: 20140515
  Serious: Yes (Other)
  Sender: FDA-Public Use
  Company Number: None

PATIENT
  Age: 61 Year
  Sex: Female
  Weight: 138.35 kg

DRUGS (15)
  1. DELTALONE [Suspect]
     Indication: JOINT INJECTION
     Dates: start: 20130905, end: 20130905
  2. LIDOCAINE [Suspect]
     Indication: JOINT INJECTION
     Dates: start: 20130905, end: 20130905
  3. LEVOTHYROXINE [Concomitant]
  4. RANITIDINE [Concomitant]
  5. VITAMIN D [Concomitant]
  6. LOPID [Concomitant]
  7. SIMVASTATIN [Concomitant]
  8. AMLODIPINE [Concomitant]
  9. LOSARTAN [Concomitant]
  10. FERROUS SULFATE [Concomitant]
  11. FOLIC ACID [Concomitant]
  12. GABAPENTIN [Concomitant]
  13. FUROSEMIDE [Concomitant]
  14. LEVEMIR [Concomitant]
  15. HUMALOG [Concomitant]

REACTIONS (4)
  - Injection site pain [None]
  - Injection site erythema [None]
  - Injection site warmth [None]
  - Injection site swelling [None]
